FAERS Safety Report 24856010 (Version 1)
Quarter: 2025Q1

REPORT INFORMATION
  Report Type: Spontaneous
  Country: US (occurrence: US)
  Receive Date: 20250117
  Receipt Date: 20250117
  Transmission Date: 20250409
  Serious: No
  Sender: ROCHE
  Company Number: US-CHEPLA-2024013514

PATIENT
  Age: 36 Year
  Sex: Female

DRUGS (2)
  1. VALGANCICLOVIR [Suspect]
     Active Substance: VALGANCICLOVIR
     Indication: Cytomegalovirus infection
     Dosage: TWICE A DAY
     Route: 048
  2. GANCICLOVIR [Concomitant]
     Active Substance: GANCICLOVIR
     Route: 061

REACTIONS (2)
  - Idiosyncratic drug reaction [Unknown]
  - Off label use [Unknown]
